FAERS Safety Report 6842659-5 (Version None)
Quarter: 2010Q3

REPORT INFORMATION
  Report Type: 
  Country: None (occurrence: None)
  Receive Date: 20100714
  Receipt Date: 20070802
  Transmission Date: 20110219
  Serious: Yes (Other)
  Sender: FDA-Public Use
  Company Number: US-PFIZER INC-2007065688

PATIENT
  Sex: Female
  Weight: 56.8 kg

DRUGS (1)
  1. CHANTIX [Suspect]
     Indication: SMOKING CESSATION THERAPY
     Route: 048
     Dates: start: 20070526

REACTIONS (6)
  - ARTHRALGIA [None]
  - MEMORY IMPAIRMENT [None]
  - MOOD SWINGS [None]
  - MYALGIA [None]
  - OEDEMA [None]
  - WEIGHT INCREASED [None]
